FAERS Safety Report 4391988-6 (Version None)
Quarter: 2004Q3

REPORT INFORMATION
  Report Type: 
  Country: None (occurrence: None)
  Receive Date: 20040701
  Receipt Date: 20040618
  Transmission Date: 20050211
  Serious: Yes (Other)
  Sender: FDA-Public Use
  Company Number: HQWYE536121JUN04

PATIENT
  Age: 74 Year
  Sex: Male
  Weight: 99.43 kg

DRUGS (2)
  1. MYLOTARG [Suspect]
     Indication: ACUTE MYELOID LEUKAEMIA
     Dosage: 9 MG/M^2 DAY 1, INTRAVENOUS;  9 MG/M^2 DAY 15, INTRAVENOUS
     Route: 042
     Dates: start: 20020814, end: 20020814
  2. MYLOTARG [Suspect]
     Indication: ACUTE MYELOID LEUKAEMIA
     Dosage: 9 MG/M^2 DAY 1, INTRAVENOUS;  9 MG/M^2 DAY 15, INTRAVENOUS
     Route: 042
     Dates: start: 20020828, end: 20020828

REACTIONS (1)
  - PANCREATITIS [None]
